FAERS Safety Report 8832771 (Version 1)
Quarter: 2012Q4

REPORT INFORMATION
  Report Type: 
  Country: US (occurrence: US)
  Receive Date: 20121010
  Receipt Date: 20121010
  Transmission Date: 20130627
  Serious: No
  Sender: FDA-Public Use
  Company Number: US-PFIZER INC-2012249951

PATIENT
  Age: 58 Year
  Sex: Female
  Weight: 88.4 kg

DRUGS (3)
  1. LIPITOR [Suspect]
     Indication: BLOOD CHOLESTEROL INCREASED
     Dosage: 40 mg, once a day
     Route: 048
     Dates: end: 2012
  2. ATORVASTATIN CALCIUM [Suspect]
     Indication: BLOOD CHOLESTEROL INCREASED
     Dosage: 40 mg, once a day
     Route: 048
     Dates: start: 2012, end: 2012
  3. LISINOPRIL [Concomitant]
     Indication: HYPERTENSION
     Dosage: 12.5 mg, UNK

REACTIONS (1)
  - Abdominal pain upper [Unknown]
